FAERS Safety Report 7582280-7 (Version None)
Quarter: 2011Q2

REPORT INFORMATION
  Report Type: 
  Country: None (occurrence: None)
  Receive Date: 20110630
  Receipt Date: 20110608
  Transmission Date: 20111010
  Serious: Yes (Other)
  Sender: FDA-Public Use
  Company Number: US-BAYER-201020534NA

PATIENT
  Age: 25 Year
  Sex: Female
  Weight: 42.727 kg

DRUGS (24)
  1. AUGMENTIN '125' [Concomitant]
     Indication: BACTERIAL INFECTION
     Dates: start: 20080101
  2. LEXAPRO [Concomitant]
     Indication: ANXIETY
     Route: 048
     Dates: start: 20090101
  3. MOTRIN [Concomitant]
  4. YAZ [Suspect]
     Indication: ACNE
     Dosage: 3-20 MG-MCG
     Route: 048
     Dates: start: 20080801, end: 20090615
  5. ACIPHEX [Concomitant]
     Indication: GASTRIC PH DECREASED
     Dates: start: 20080101
  6. UNCODEABLE ^UNCLASSIFIABLE^ [Concomitant]
     Dates: start: 20090101
  7. NEXIUM [Concomitant]
     Indication: GASTRIC PH DECREASED
     Dates: start: 20080101
  8. PANTOPRAZOLE [Concomitant]
     Indication: GASTROOESOPHAGEAL REFLUX DISEASE
     Route: 048
     Dates: start: 20080101
  9. METOCLOPRAMIDE [Concomitant]
     Indication: GASTROOESOPHAGEAL REFLUX DISEASE
     Dates: start: 20080101
  10. AZITHROMYCIN [Concomitant]
     Indication: ANTIALLERGIC THERAPY
     Dates: start: 20080101
  11. PHENERGAN HCL [Concomitant]
     Route: 048
  12. ALPRAZOLAM [Concomitant]
     Indication: ANXIETY
     Route: 048
     Dates: start: 20080101
  13. REGLAN [Concomitant]
     Dosage: 10 MG IN 8 ML
  14. BENADRYL [Concomitant]
     Dosage: 25 MG IN 9 ML
  15. INAPSINE [Concomitant]
     Dosage: 1 MG IN 4 ML
  16. PROMETHAZINE [Concomitant]
     Indication: ANTIALLERGIC THERAPY
     Dates: start: 20080101
  17. BENZACLIN [Concomitant]
     Indication: ACNE
     Dates: start: 20090101
  18. DEXTROAMPHETAMINE [Concomitant]
     Indication: FATIGUE
     Dates: start: 20090101
  19. LUNESTA [Concomitant]
     Indication: INSOMNIA
     Dates: start: 20090101
  20. PROMETHAZINE HCL AND CODEINE [Concomitant]
     Indication: ANTIALLERGIC THERAPY
     Route: 048
     Dates: start: 20090101
  21. METHYLPREDNISOLONE [Concomitant]
     Dates: start: 20080101
  22. METHYLPREDNISOLONE [Concomitant]
     Indication: GASTROOESOPHAGEAL REFLUX DISEASE
     Dates: start: 20080101
  23. TRIMETHOPRIM [Concomitant]
     Indication: BACTERIAL INFECTION
     Dates: start: 20090101
  24. PROMETHAZINE W/ CODEINE [Concomitant]
     Route: 048
     Dates: start: 20090101

REACTIONS (25)
  - NAUSEA [None]
  - ALOPECIA [None]
  - INSOMNIA [None]
  - PRESYNCOPE [None]
  - VENTRICULAR EXTRASYSTOLES [None]
  - DIZZINESS [None]
  - DECREASED APPETITE [None]
  - MITRAL VALVE PROLAPSE [None]
  - GASTROINTESTINAL SOUNDS ABNORMAL [None]
  - WEIGHT DECREASED [None]
  - SUPRAVENTRICULAR EXTRASYSTOLES [None]
  - NEPHROLITHIASIS [None]
  - ABDOMINAL PAIN [None]
  - DIARRHOEA [None]
  - BACK PAIN [None]
  - TREMOR [None]
  - SYNCOPE [None]
  - SINUS TACHYCARDIA [None]
  - PEPTIC ULCER [None]
  - SINUS ARRHYTHMIA [None]
  - CYSTITIS [None]
  - VOMITING [None]
  - ASTHENIA [None]
  - PALPITATIONS [None]
  - HYPERHIDROSIS [None]
